FAERS Safety Report 23297696 (Version 1)
Quarter: 2023Q4

REPORT INFORMATION
  Report Type: Spontaneous
  Country: FR (occurrence: FR)
  Receive Date: 20231214
  Receipt Date: 20231214
  Transmission Date: 20240110
  Serious: Yes (Other)
  Sender: FDA-Public Use
  Company Number: FR-AFSSAPS-LL2023001512

PATIENT
  Age: 67 Year
  Sex: Female

DRUGS (2)
  1. BORTEZOMIB [Suspect]
     Active Substance: BORTEZOMIB
     Indication: Plasma cell myeloma
     Dosage: UNK, 1ST INJECTION
     Route: 058
     Dates: start: 20230721
  2. BORTEZOMIB [Suspect]
     Active Substance: BORTEZOMIB
     Dosage: UNK, 2ND INJECTION
     Route: 058
     Dates: start: 20230728

REACTIONS (1)
  - Skin necrosis [Recovered/Resolved]

NARRATIVE: CASE EVENT DATE: 20230804
